FAERS Safety Report 17135046 (Version 1)
Quarter: 2019Q4

REPORT INFORMATION
  Report Type: Spontaneous
  Country: FR (occurrence: FR)
  Receive Date: 20191210
  Receipt Date: 20191210
  Transmission Date: 20200122
  Serious: Yes (Other)
  Sender: FDA-Public Use
  Company Number: FR-009507513-1912FRA000327

PATIENT
  Age: 36 Year
  Sex: Male
  Weight: 68 kg

DRUGS (1)
  1. PROPECIA [Suspect]
     Active Substance: FINASTERIDE
     Indication: ALOPECIA
     Dosage: 1 MILLIGRAM, QD
     Route: 048
     Dates: start: 201306, end: 201406

REACTIONS (2)
  - Libido disorder [Not Recovered/Not Resolved]
  - Penis disorder [Not Recovered/Not Resolved]

NARRATIVE: CASE EVENT DATE: 201401
